FAERS Safety Report 12060878 (Version 1)
Quarter: 2016Q1

REPORT INFORMATION
  Report Type: Spontaneous
  Country: US (occurrence: US)
  Receive Date: 20160210
  Receipt Date: 20160210
  Transmission Date: 20160526
  Serious: No
  Sender: FDA-Public Use
  Company Number: US-MYLANLABS-2015M1009077

PATIENT
  Sex: Female
  Weight: 61.22 kg

DRUGS (1)
  1. METOPROLOL SUCCINATE EXTENDED-RELEASE TABLETS, USP [Suspect]
     Active Substance: METOPROLOL SUCCINATE
     Indication: HYPERTENSION
     Dosage: 25 MG, HS
     Route: 048
     Dates: start: 2014

REACTIONS (1)
  - Pruritus [Not Recovered/Not Resolved]
